FAERS Safety Report 23101286 (Version 2)
Quarter: 2024Q1

REPORT INFORMATION
  Report Type: Spontaneous
  Country: US (occurrence: US)
  Receive Date: 20231024
  Receipt Date: 20240130
  Transmission Date: 20240410
  Serious: Yes (Death)
  Sender: FDA-Public Use
  Company Number: US-PFIZER INC-PV202300175573

PATIENT
  Age: 66 Year
  Sex: Female
  Weight: 61.224 kg

DRUGS (1)
  1. IBRANCE [Suspect]
     Active Substance: PALBOCICLIB
     Indication: Breast cancer metastatic
     Dosage: 75 MG
     Dates: start: 2019

REACTIONS (2)
  - Death [Fatal]
  - Neoplasm progression [Unknown]

NARRATIVE: CASE EVENT DATE: 20230920
